FAERS Safety Report 9451655 (Version 2)
Quarter: 2013Q3

REPORT INFORMATION
  Report Type: Report from Study
  Country: AT (occurrence: AT)
  Receive Date: 20130812
  Receipt Date: 20130919
  Transmission Date: 20140515
  Serious: Yes (Hospitalization)
  Sender: FDA-Public Use
  Company Number: AT-009507513-1307AUT004412

PATIENT
  Age: 76 Year
  Sex: Male
  Weight: 97.6 kg

DRUGS (19)
  1. BLINDED PLACEBO [Suspect]
     Indication: PROPHYLAXIS
     Route: 058
     Dates: start: 20111219, end: 20111219
  2. BLINDED POST TRIAL THERAPY [Suspect]
     Indication: PROPHYLAXIS
     Route: 058
     Dates: start: 20111219, end: 20111219
  3. BLINDED PRE TRIAL THERAPY [Suspect]
     Indication: PROPHYLAXIS
     Route: 058
     Dates: start: 20111219, end: 20111219
  4. BLINDED VARICELLA-ZOSTER VIRUS VACCINE INACTIVATED (OKA/MERCK) [Suspect]
     Indication: PROPHYLAXIS
     Route: 058
     Dates: start: 20111219, end: 20111219
  5. BLINDED PLACEBO [Suspect]
     Route: 058
     Dates: start: 20110916, end: 20110916
  6. BLINDED POST TRIAL THERAPY [Suspect]
     Route: 058
     Dates: start: 20110916, end: 20110916
  7. BLINDED PRE TRIAL THERAPY [Suspect]
     Route: 058
     Dates: start: 20110916, end: 20110916
  8. BLINDED VARICELLA-ZOSTER VIRUS VACCINE INACTIVATED (OKA/MERCK) [Suspect]
     Route: 058
     Dates: start: 20110916, end: 20110916
  9. BLINDED PLACEBO [Suspect]
     Route: 058
     Dates: start: 20111017, end: 20111017
  10. BLINDED POST TRIAL THERAPY [Suspect]
     Route: 058
     Dates: start: 20111017, end: 20111017
  11. BLINDED PRE TRIAL THERAPY [Suspect]
     Route: 058
     Dates: start: 20111017, end: 20111017
  12. BLINDED VARICELLA-ZOSTER VIRUS VACCINE INACTIVATED (OKA/MERCK) [Suspect]
     Route: 058
     Dates: start: 20111017, end: 20111017
  13. BLINDED PLACEBO [Suspect]
     Route: 058
     Dates: start: 20111116, end: 20111116
  14. BLINDED POST TRIAL THERAPY [Suspect]
     Route: 058
     Dates: start: 20111116, end: 20111116
  15. BLINDED PRE TRIAL THERAPY [Suspect]
     Route: 058
     Dates: start: 20111116, end: 20111116
  16. BLINDED VARICELLA-ZOSTER VIRUS VACCINE INACTIVATED (OKA/MERCK) [Suspect]
     Route: 058
     Dates: start: 20111116, end: 20111116
  17. ALNA [Concomitant]
     Indication: PROSTATIC ADENOMA
     Dosage: 0.4 MG, QD
     Route: 048
     Dates: start: 20050711
  18. GLICLAZIDE [Concomitant]
     Indication: TYPE 2 DIABETES MELLITUS
     Dosage: 30 MG, QD
     Route: 048
     Dates: start: 20051109, end: 20130208
  19. PRIVIGEN [Suspect]
     Indication: IMMUNOGLOBULINS DECREASED
     Dosage: UNK
     Dates: start: 20130208

REACTIONS (1)
  - Anaphylactic reaction [Recovered/Resolved]
